FAERS Safety Report 6277382-1 (Version None)
Quarter: 2009Q3

REPORT INFORMATION
  Report Type: 
  Country: None (occurrence: None)
  Receive Date: 20090722
  Receipt Date: 20090501
  Transmission Date: 20100115
  Serious: No
  Sender: FDA-Public Use
  Company Number: US-BRISTOL-MYERS SQUIBB COMPANY-14609143

PATIENT
  Age: 87 Year
  Sex: Female
  Weight: 66 kg

DRUGS (3)
  1. COUMADIN [Suspect]
  2. PERCOCET [Concomitant]
  3. NEXIUM [Concomitant]

REACTIONS (1)
  - CHROMATURIA [None]
